FAERS Safety Report 5643346-1 (Version None)
Quarter: 2008Q1

REPORT INFORMATION
  Report Type: 
  Country: None (occurrence: None)
  Receive Date: 20080228
  Receipt Date: 20080225
  Transmission Date: 20080703
  Serious: Yes (Life-Threatening)
  Sender: FDA-Public Use
  Company Number: DE-ASTRAZENECA-2008PK00412

PATIENT
  Age: 28092 Day
  Sex: Female

DRUGS (22)
  1. METOPROLOL SUCCINATE [Suspect]
     Indication: HYPERTENSION
     Route: 048
     Dates: start: 20041005
  2. PHENHYDAN [Suspect]
     Indication: CONVULSION PROPHYLAXIS
     Route: 048
     Dates: start: 20040930, end: 20041025
  3. RANITIC [Suspect]
     Indication: PROPHYLAXIS AGAINST GASTROINTESTINAL ULCER
     Route: 048
     Dates: start: 20040928, end: 20041026
  4. BENALAPRIL [Suspect]
     Indication: HYPERTENSION
     Route: 048
     Dates: start: 20041005, end: 20041026
  5. ASPIRIN [Suspect]
     Indication: THROMBOSIS PROPHYLAXIS
     Route: 048
     Dates: start: 20041005, end: 20041026
  6. NORVASC [Suspect]
     Indication: HYPERTENSION
     Route: 048
     Dates: start: 20041006, end: 20041026
  7. CLEXANE [Suspect]
     Indication: THROMBOSIS PROPHYLAXIS
     Route: 058
     Dates: start: 20041007, end: 20041026
  8. HALDOL [Suspect]
     Indication: RESTLESSNESS
     Route: 042
     Dates: start: 20041010, end: 20041010
  9. HALDOL [Suspect]
     Route: 048
     Dates: start: 20041010, end: 20041025
  10. TAVOR [Suspect]
     Indication: RESTLESSNESS
     Route: 042
     Dates: start: 20041010, end: 20041010
  11. TAVOR [Suspect]
     Route: 048
     Dates: start: 20041011
  12. MOXONIDIN [Concomitant]
     Indication: HYPERTENSION
     Route: 048
     Dates: start: 20040922, end: 20041005
  13. AMLODIPINE [Concomitant]
     Indication: HYPERTENSION
     Route: 048
     Dates: start: 20040922, end: 20041005
  14. TORSEMIDE [Concomitant]
     Indication: HYPERTENSION
     Route: 048
     Dates: start: 20040922, end: 20041007
  15. DIPIDOLOR [Concomitant]
     Indication: PAIN
     Route: 042
     Dates: start: 20041005, end: 20041005
  16. SAB SIMPLEX [Concomitant]
     Indication: FLATULENCE
     Route: 048
     Dates: start: 20041005, end: 20041005
  17. ADALAT [Concomitant]
     Indication: HYPERTENSION
     Route: 048
     Dates: start: 20041005, end: 20041006
  18. MERONEM [Concomitant]
     Indication: INFECTION
     Route: 042
     Dates: start: 20041005, end: 20041010
  19. ACC BRAUSE [Concomitant]
     Indication: PRODUCTIVE COUGH
     Route: 048
     Dates: start: 20041005, end: 20041013
  20. KALINOR BRAUSE [Concomitant]
     Indication: HYPOKALAEMIA
     Route: 048
     Dates: start: 20041005, end: 20041026
  21. REKAWAN [Concomitant]
     Indication: MINERAL SUPPLEMENTATION
     Route: 048
     Dates: start: 20041007, end: 20041010
  22. SODIUM CHLORIDE [Concomitant]
     Indication: MINERAL SUPPLEMENTATION
     Route: 048
     Dates: start: 20041021, end: 20041026

REACTIONS (1)
  - TOXIC EPIDERMAL NECROLYSIS [None]
